FAERS Safety Report 7286818-9 (Version None)
Quarter: 2011Q1

REPORT INFORMATION
  Report Type: 
  Country: None (occurrence: None)
  Receive Date: 20110210
  Receipt Date: 20110124
  Transmission Date: 20110831
  Serious: Yes (Disabling, Other)
  Sender: FDA-Public Use
  Company Number: US-BAYER-200916707NA

PATIENT
  Sex: Female
  Weight: 54.091 kg

DRUGS (27)
  1. OMNISCAN [Suspect]
     Indication: NUCLEAR MAGNETIC RESONANCE IMAGING
  2. OPTIMARK [Suspect]
     Indication: NUCLEAR MAGNETIC RESONANCE IMAGING
  3. XANAX [Concomitant]
  4. ZEMPLAR [Concomitant]
  5. PROTONIX [Concomitant]
     Indication: GASTROOESOPHAGEAL REFLUX DISEASE
  6. ADVAIR DISKUS 100/50 [Concomitant]
     Indication: ASTHMA
  7. DYNACIRC [Concomitant]
  8. MAGNEVIST [Suspect]
     Indication: OSTEOMYELITIS
     Dates: start: 20061124, end: 20061124
  9. GADOLINIUM IN UNSPECIFIED DRUG [Suspect]
  10. ZYRTEC [Concomitant]
     Indication: MULTIPLE ALLERGIES
  11. MAGNEVIST [Suspect]
     Dates: start: 20061204, end: 20061204
  12. MULTIHANCE [Suspect]
     Indication: OSTEOMYELITIS
  13. PROHANCE [Suspect]
     Indication: NUCLEAR MAGNETIC RESONANCE IMAGING
  14. METOPROLOL TARTRATE [Concomitant]
  15. PROTONIX [Concomitant]
  16. BENICAR [Concomitant]
  17. ALBUTEROL [Concomitant]
  18. HYDROCODONE BITARTRATE AND ACETAMINOPHEN [Concomitant]
  19. COUMADIN [Concomitant]
  20. ADVAIR [Concomitant]
  21. EPOGEN [Concomitant]
     Indication: ANAEMIA
     Dates: start: 20030901
  22. FOSRENOL [Concomitant]
     Dates: start: 20060309
  23. MAGNEVIST [Suspect]
     Indication: NUCLEAR MAGNETIC RESONANCE IMAGING
     Route: 042
     Dates: start: 20061122, end: 20061122
  24. ZOFRAN [Concomitant]
  25. SENSIPAR [Concomitant]
  26. RENAGEL [Concomitant]
  27. FERRLECIT [Concomitant]
     Dates: start: 20030901

REACTIONS (18)
  - SKIN HYPERPIGMENTATION [None]
  - NEPHROGENIC SYSTEMIC FIBROSIS [None]
  - FIBROSIS [None]
  - PAIN [None]
  - GAIT DISTURBANCE [None]
  - SCAR [None]
  - EMOTIONAL DISTRESS [None]
  - GENERAL PHYSICAL HEALTH DETERIORATION [None]
  - JOINT RANGE OF MOTION DECREASED [None]
  - MUSCLE TIGHTNESS [None]
  - SKIN INDURATION [None]
  - OEDEMA PERIPHERAL [None]
  - SKIN HYPERTROPHY [None]
  - TENDON DISORDER [None]
  - HYPERAESTHESIA [None]
  - SKIN NECROSIS [None]
  - ANXIETY [None]
  - MOBILITY DECREASED [None]
